FAERS Safety Report 13726322 (Version 1)
Quarter: 2017Q3

REPORT INFORMATION
  Report Type: Spontaneous
  Country: CN (occurrence: CN)
  Receive Date: 20170707
  Receipt Date: 20170707
  Transmission Date: 20171127
  Serious: Yes (Other)
  Sender: FDA-Public Use
  Company Number: CN-SCIEGEN PHARMACEUTICALS INC-2017SCILIT00458

PATIENT
  Age: 24 Year
  Sex: Female

DRUGS (1)
  1. LAMOTRIGINE TABLETS [Suspect]
     Active Substance: LAMOTRIGINE
     Indication: EPILEPSY
     Dosage: 50 MG, TID
     Route: 065

REACTIONS (2)
  - Maternal exposure during pregnancy [Unknown]
  - Stillbirth [None]
